FAERS Safety Report 11262499 (Version 1)
Quarter: 2015Q3

REPORT INFORMATION
  Report Type: Spontaneous
  Country: GB (occurrence: GB)
  Receive Date: 20150710
  Receipt Date: 20150710
  Transmission Date: 20151125
  Serious: Yes (Disabling, Other)
  Sender: FDA-Public Use
  Company Number: GB-ELI_LILLY_AND_COMPANY-GB201506010237

PATIENT
  Age: 63 Year
  Sex: Female
  Weight: 69.85 kg

DRUGS (1)
  1. PROZAC [Suspect]
     Active Substance: FLUOXETINE HYDROCHLORIDE
     Indication: SCHIZOAFFECTIVE DISORDER
     Dosage: 20 MG, QD
     Route: 065
     Dates: start: 20080910, end: 20150616

REACTIONS (5)
  - Paranoia [Recovered/Resolved]
  - Fear [Recovered/Resolved]
  - Impaired reasoning [Recovered/Resolved]
  - Abnormal behaviour [Recovered/Resolved]
  - Staring [Recovered/Resolved]

NARRATIVE: CASE EVENT DATE: 20080910
